FAERS Safety Report 25985583 (Version 1)
Quarter: 2025Q4

REPORT INFORMATION
  Report Type: Spontaneous
  Country: EU (occurrence: EU)
  Receive Date: 20251101
  Receipt Date: 20251101
  Transmission Date: 20260118
  Serious: Yes (Hospitalization, Other)
  Sender: AUROBINDO
  Company Number: EU-AFSSAPS-BS2025000803

PATIENT
  Age: 63 Year
  Sex: Female
  Weight: 80.4 kg

DRUGS (5)
  1. METHOTREXATE [Suspect]
     Active Substance: METHOTREXATE
     Indication: Chronic lymphocytic leukaemia stage 4
     Dosage: 2000 MILLIGRAM
     Route: 042
     Dates: start: 20250715, end: 20250715
  2. METHOTREXATE [Suspect]
     Active Substance: METHOTREXATE
     Dosage: 15 MILLIGRAM
     Route: 037
     Dates: start: 20250718, end: 20250718
  3. CYTARABINE [Suspect]
     Active Substance: CYTARABINE
     Indication: Chronic lymphocytic leukaemia stage 4
     Dosage: 6050 MILLIGRAM, TWO TIMES A DAY
     Route: 042
     Dates: start: 20250716, end: 20250717
  4. CYTARABINE [Suspect]
     Active Substance: CYTARABINE
     Dosage: 40 MILLIGRAM
     Route: 037
     Dates: start: 20250718, end: 20250718
  5. ICLUSIG [Suspect]
     Active Substance: PONATINIB HYDROCHLORIDE
     Indication: Chronic lymphocytic leukaemia stage 4
     Dosage: 30 MILLIGRAM, ONCE A DAY
     Route: 048

REACTIONS (3)
  - Paraparesis [Not Recovered/Not Resolved]
  - Peripheral motor neuropathy [Not Recovered/Not Resolved]
  - Peripheral sensory neuropathy [Not Recovered/Not Resolved]

NARRATIVE: CASE EVENT DATE: 20250808
